FAERS Safety Report 24284414 (Version 2)
Quarter: 2024Q3

REPORT INFORMATION
  Report Type: Spontaneous
  Country: AU (occurrence: AU)
  Receive Date: 20240905
  Receipt Date: 20240905
  Transmission Date: 20241017
  Serious: No
  Sender: ALKEM
  Company Number: AU-ALKEM LABORATORIES LIMITED-AU-ALKEM-2024-13339

PATIENT
  Age: 19 Year
  Sex: Male

DRUGS (11)
  1. LINEZOLID [Suspect]
     Active Substance: LINEZOLID
     Indication: Pneumonia staphylococcal
     Dosage: 600 MILLIGRAM, BID (DAY 12)
     Route: 042
  2. LINEZOLID [Suspect]
     Active Substance: LINEZOLID
     Indication: Empyema
     Dosage: 600 MILLIGRAM, TID (DAY 14)
     Route: 042
  3. LINEZOLID [Suspect]
     Active Substance: LINEZOLID
     Dosage: 600 MILLIGRAM, QID (DAY 15)
     Route: 042
  4. LINEZOLID [Suspect]
     Active Substance: LINEZOLID
     Dosage: 600 MILLIGRAM, TID
     Route: 048
  5. LINEZOLID [Suspect]
     Active Substance: LINEZOLID
     Dosage: 600 MILLIGRAM, BID
     Route: 042
  6. VANCOMYCIN [Suspect]
     Active Substance: VANCOMYCIN
     Indication: Empyema
     Dosage: 4000 MILLIGRAM, QD
     Route: 065
  7. VANCOMYCIN [Suspect]
     Active Substance: VANCOMYCIN
     Indication: Pneumonia staphylococcal
     Dosage: 6000 MILLIGRAM, QD (DAY 9)
     Route: 065
  8. CIPROFLOXACIN [Suspect]
     Active Substance: CIPROFLOXACIN
     Indication: Pneumonia staphylococcal
     Dosage: 400 MILLIGRAM, TID (DAY 11)
     Route: 042
  9. CIPROFLOXACIN [Suspect]
     Active Substance: CIPROFLOXACIN
     Indication: Empyema
     Dosage: 800 MILLIGRAM, BID
     Route: 042
  10. CLINDAMYCIN [Suspect]
     Active Substance: CLINDAMYCIN
     Indication: Pneumonia staphylococcal
     Dosage: 600 MILLIGRAM, TID
     Route: 065
  11. CLINDAMYCIN [Suspect]
     Active Substance: CLINDAMYCIN
     Indication: Empyema
     Dosage: 600 MILLIGRAM, QID
     Route: 065

REACTIONS (1)
  - Treatment failure [Unknown]
